FAERS Safety Report 5164749-8 (Version None)
Quarter: 2006Q4

REPORT INFORMATION
  Report Type: 
  Country: None (occurrence: None)
  Receive Date: 20061205
  Receipt Date: 20030217
  Transmission Date: 20070319
  Serious: Yes (Hospitalization)
  Sender: FDA-Public Use
  Company Number: FR-GLAXOSMITHKLINE-B0292617A

PATIENT
  Age: 15 Month
  Sex: Male

DRUGS (7)
  1. RETROVIR [Suspect]
     Indication: ANTIVIRAL PROPHYLAXIS
     Dosage: 10MGML UNKNOWN
     Dates: start: 20010404
  2. RETROVIR [Suspect]
     Dates: start: 20010404, end: 20010404
  3. COMBIVIR [Suspect]
     Indication: HIV INFECTION
  4. VIRACEPT [Suspect]
     Indication: HIV INFECTION
  5. ALDOMET [Concomitant]
  6. TRANDATE [Concomitant]
  7. EUPRESSYL [Concomitant]

REACTIONS (2)
  - DRUG EXPOSURE DURING PREGNANCY [None]
  - STRABISMUS [None]
